FAERS Safety Report 23443882 (Version 2)
Quarter: 2024Q1

REPORT INFORMATION
  Report Type: Spontaneous
  Country: FR (occurrence: FR)
  Receive Date: 20240125
  Receipt Date: 20240216
  Transmission Date: 20240410
  Serious: Yes (Hospitalization)
  Sender: FDA-Public Use
  Company Number: None

PATIENT
  Age: 67 Year
  Sex: Male
  Weight: 60 kg

DRUGS (8)
  1. METHYLPREDNISOLONE SODIUM SUCCINATE [Suspect]
     Active Substance: METHYLPREDNISOLONE SODIUM SUCCINATE
     Indication: Chemotherapy side effect prophylaxis
     Dosage: 120 MG, SINGLE
     Route: 065
     Dates: start: 20240111, end: 20240111
  2. APREPITANT [Suspect]
     Active Substance: APREPITANT
     Indication: Chemotherapy side effect prophylaxis
     Dosage: 125 MG, SINGLE
     Route: 048
     Dates: start: 20240111, end: 20240111
  3. DESLORATADINE [Suspect]
     Active Substance: DESLORATADINE
     Indication: Chemotherapy side effect prophylaxis
     Dosage: 5 MG, SINGLE
     Route: 048
     Dates: start: 20240111, end: 20240111
  4. CETUXIMAB [Suspect]
     Active Substance: CETUXIMAB
     Indication: Colon cancer metastatic
     Dosage: 830 MG, SINGLE
     Route: 042
     Dates: start: 20240111, end: 20240111
  5. ONDANSETRON [Suspect]
     Active Substance: ONDANSETRON
     Indication: Chemotherapy side effect prophylaxis
     Dosage: 8 MG, SINGLE
     Route: 065
     Dates: start: 20240111, end: 20240111
  6. TEGRETOL [Concomitant]
     Active Substance: CARBAMAZEPINE
  7. TOPIRAMATE [Concomitant]
     Active Substance: TOPIRAMATE
  8. VIMPAT [Concomitant]
     Active Substance: LACOSAMIDE

REACTIONS (1)
  - Epilepsy [Recovered/Resolved]

NARRATIVE: CASE EVENT DATE: 20240111
